FAERS Safety Report 8880231 (Version 1)
Quarter: 2012Q4

REPORT INFORMATION
  Report Type: 
  Country: DE (occurrence: DE)
  Receive Date: 20121101
  Receipt Date: 20121101
  Transmission Date: 20130627
  Serious: Yes (Other)
  Sender: FDA-Public Use
  Company Number: PHHO2012DE015627

PATIENT
  Age: 18 Year
  Sex: Male

DRUGS (13)
  1. ZOLEDRONATE [Suspect]
     Indication: EWING^S SARCOMA
     Dosage: 4 mg, daily
     Route: 042
     Dates: start: 20120210, end: 20120210
  2. HOLOXAN [Suspect]
     Indication: EWING^S SARCOMA
     Dosage: 5620 mg, daily
     Route: 042
     Dates: start: 20110519, end: 20120211
  3. VINCRISTINE [Concomitant]
     Indication: EWING^S SARCOMA
     Dosage: 2 mg, daily
     Route: 042
     Dates: start: 20110519
  4. DOXORUBICIN [Concomitant]
     Indication: EWING^S SARCOMA
     Dosage: 39 mg, UNK
     Route: 042
     Dates: start: 20110519, end: 20110914
  5. COSMEGEN [Concomitant]
     Indication: EWING^S SARCOMA
     Dosage: 1.35 mg, UNK
     Route: 042
     Dates: start: 20111019, end: 20111228
  6. VP-16 [Concomitant]
     Indication: EWING^S SARCOMA
     Dosage: 280 mg, UNK
     Route: 042
     Dates: start: 20110519
  7. HUMALOG [Concomitant]
     Indication: DIABETES MELLITUS
     Dosage: UNK
     Route: 058
     Dates: start: 2000
  8. COTRIM [Concomitant]
     Indication: PROPHYLAXIS
     Dosage: 320 mg, UNK
     Route: 048
     Dates: start: 20110529
  9. AMPHO MORONAL [Concomitant]
     Indication: PROPHYLAXIS
     Dosage: 8 mg, daily
     Route: 048
     Dates: start: 20110529
  10. COLISTIN [Concomitant]
     Indication: PROPHYLAXIS
     Route: 048
     Dates: start: 20110529
  11. CLEXANE [Concomitant]
     Indication: THROMBOSIS PROPHYLAXIS
     Dosage: 40 mg, UNK
     Route: 058
     Dates: start: 20121004
  12. CYCLOPHOSPHAMIDE [Concomitant]
     Indication: EWING^S SARCOMA
  13. PHOSPHATE [Concomitant]

REACTIONS (1)
  - Renal tubular disorder [Recovered/Resolved]
